FAERS Safety Report 7921398 (Version 2)
Quarter: 2013Q4

REPORT INFORMATION
  Report Type: Report from Study
  Country: US (occurrence: US)
  Receive Date: 20110429
  Receipt Date: 20131115
  Transmission Date: 20140711
  Serious: No
  Sender: FDA-Public Use
  Company Number: US-ASTRAZENECA-2010SE34095

PATIENT
  Age: 36 Year
  Sex: Female

DRUGS (10)
  1. NEXIUM [Suspect]
     Route: 048
     Dates: start: 1998
  2. NEXIUM [Suspect]
     Route: 048
     Dates: start: 2005
  3. NEXIUM [Suspect]
     Route: 048
     Dates: start: 201310, end: 20131103
  4. NEXIUM [Suspect]
     Route: 048
     Dates: start: 201311
  5. ATENOLOL [Suspect]
     Route: 048
  6. ZESTORETIC [Suspect]
     Indication: HYPERTENSION
     Dosage: 20 MG+12.5 MG DAILY
     Route: 048
  7. PRAVASTATIN [Concomitant]
     Indication: BLOOD CHOLESTEROL INCREASED
     Route: 048
  8. ADVAIR [Concomitant]
     Indication: ASTHMA
     Dosage: 500/50 MG BID
  9. REMERON [Concomitant]
     Indication: DEPRESSION
     Route: 048
  10. NEURONTIN [Concomitant]
     Indication: ANXIETY
     Route: 048

REACTIONS (10)
  - Eructation [Unknown]
  - Chest pain [Recovered/Resolved]
  - Hypertension [Not Recovered/Not Resolved]
  - Blood cholesterol increased [Recovered/Resolved]
  - Asthma [Unknown]
  - Gastrooesophageal reflux disease [Unknown]
  - Feeling abnormal [Unknown]
  - Abdominal pain upper [Not Recovered/Not Resolved]
  - Intentional drug misuse [Not Recovered/Not Resolved]
  - Off label use [Unknown]
